FAERS Safety Report 6221279-X (Version None)
Quarter: 2009Q2

REPORT INFORMATION
  Report Type: 
  Country: None (occurrence: None)
  Receive Date: 20090610
  Receipt Date: 20090603
  Transmission Date: 20091009
  Serious: Yes (Other)
  Sender: FDA-Public Use
  Company Number: CA-ASTRAZENECA-2009UW14262

PATIENT
  Age: 67 Year
  Sex: Female

DRUGS (6)
  1. SYMBICORT [Suspect]
     Indication: ASTHMA
     Dosage: 1-2 PUFFS 2-3 TIMES
     Route: 055
     Dates: start: 20030101
  2. SYNTHROID [Concomitant]
     Indication: HYPOTHYROIDISM
     Dosage: 75
     Route: 048
  3. TUSSIONEX [Concomitant]
     Indication: COUGH
     Dosage: 1-2 TSP
  4. PARIET [Concomitant]
     Indication: GASTRIC DISORDER
     Route: 048
  5. ALBUTEROL [Concomitant]
     Indication: ASTHMA
     Dosage: 2
  6. ZOPICLONE [Concomitant]
     Indication: INSOMNIA
     Dosage: 1

REACTIONS (3)
  - COUGH [None]
  - DRUG INEFFECTIVE [None]
  - DYSPNOEA [None]
